FAERS Safety Report 7536195-0 (Version None)
Quarter: 2011Q2

REPORT INFORMATION
  Report Type: 
  Country: None (occurrence: None)
  Receive Date: 20110608
  Receipt Date: 20110608
  Transmission Date: 20111010
  Serious: Yes (Life-Threatening, Hospitalization, Disabling, Other)
  Sender: FDA-Public Use
  Company Number: None

PATIENT
  Age: 83 Year
  Sex: Female

DRUGS (1)
  1. ALTEPLASE 100 MG [Suspect]
     Indication: CEREBROVASCULAR ACCIDENT
     Dosage: 0.01 MG/KG IVX1 ONCE IV
     Route: 042
     Dates: start: 20110415, end: 20110415

REACTIONS (4)
  - CONVULSION [None]
  - UNRESPONSIVE TO STIMULI [None]
  - HAEMATURIA [None]
  - OXYGEN SATURATION DECREASED [None]
